FAERS Safety Report 15869838 (Version 1)
Quarter: 2019Q1

REPORT INFORMATION
  Report Type: Spontaneous
  Country: DK (occurrence: DK)
  Receive Date: 20190125
  Receipt Date: 20190125
  Transmission Date: 20190417
  Serious: Yes (Life-Threatening, Hospitalization)
  Sender: FDA-Public Use
  Company Number: PHHY2019DK016880

PATIENT
  Age: 75 Year
  Sex: Female

DRUGS (16)
  1. SPIRIVA [Concomitant]
     Active Substance: TIOTROPIUM BROMIDE MONOHYDRATE
     Indication: CHRONIC OBSTRUCTIVE PULMONARY DISEASE
     Dosage: 2 DF, QD (STYRKE: 2,5MIKROGRAM)
     Route: 055
     Dates: start: 2016
  2. NORITREN [Concomitant]
     Active Substance: NORTRIPTYLINE HYDROCHLORIDE
     Indication: DEPRESSION
     Dosage: 10 MG, QD (STYRKE: 10 MG)
     Route: 048
     Dates: start: 2017
  3. MATRIFEN [Concomitant]
     Active Substance: FENTANYL
     Indication: PAIN
     Dosage: 1 DF, UNK (STYRKE: 50 MIKROGRAM/TIME, 3 DAY)
     Route: 003
     Dates: start: 2017
  4. DICILLIN [Suspect]
     Active Substance: DICLOXACILLIN SODIUM
     Indication: STAPHYLOCOCCAL INFECTION
     Dosage: 3000 MG, QD (STYRKE: 500 MG)
     Route: 048
     Dates: start: 20181207, end: 20181220
  5. MEMANTIN ACCORD [Concomitant]
     Indication: DEMENTIA ALZHEIMER^S TYPE
     Dosage: 10 MG, QD (STYRKE: 10 MG)
     Route: 048
     Dates: start: 20180301
  6. GABAPENTIN. [Concomitant]
     Active Substance: GABAPENTIN
     Indication: PAIN
     Dosage: 600 MG, QD (STYRKE: 300 MG)
     Route: 048
     Dates: start: 2017
  7. FORMOTEROL [Concomitant]
     Active Substance: FORMOTEROL
     Indication: ASTHMA
     Dosage: 4 DF, QD (STYRKE: 250+10MIKROGRAM)
     Route: 055
     Dates: start: 20180409
  8. CALCIUM [Concomitant]
     Active Substance: CALCIUM
     Indication: MINERAL SUPPLEMENTATION
     Dosage: 2 DF, QD (STYRKE: UKENDT)
     Route: 048
     Dates: start: 2013
  9. TRAMADOL. [Concomitant]
     Active Substance: TRAMADOL
     Indication: PAIN
     Dosage: 50 MG, UNK (DOSIS: 1TABL EFTER BEHOVSTYRKE: 50 MG)
     Route: 048
     Dates: start: 20180409
  10. MACROGOL 3350 [Concomitant]
     Active Substance: POLYETHYLENE GLYCOL 3350
     Indication: CONSTIPATION
     Dosage: 1 DF, UNK (STYRKE: UKENDT DOSIS: 1 BREV EFTER BEHOV, H?JEST 3 GANGE DAGLIGT)
     Route: 048
     Dates: start: 2017
  11. VITAMIN D [Concomitant]
     Active Substance: CHOLECALCIFEROL
     Indication: MINERAL SUPPLEMENTATION
     Dosage: 2 DF, QD
     Route: 048
     Dates: start: 2013
  12. PANTOPRAZOLE SODIUM SESQUIHYDRATE [Concomitant]
     Active Substance: PANTOPRAZOLE SODIUM
     Indication: GASTROOESOPHAGEAL REFLUX PROPHYLAXIS
     Dosage: 40 MG, QD (STYRKE: 40 MG)
     Route: 048
     Dates: start: 2015
  13. BRICANYL [Concomitant]
     Active Substance: TERBUTALINE SULFATE
     Indication: BRONCHOSPASM
     Dosage: 0.5 MG, UNK (DOSIS: 1 SUG EFTER BEHOVSTYRKE: 0,5MG/DOSIS)
     Route: 055
     Dates: start: 2015
  14. PANODIL [Concomitant]
     Active Substance: ACETAMINOPHEN
     Indication: PAIN
     Dosage: 1330 MG, QD (STYRKE: 665 MG)
     Route: 048
     Dates: start: 2016
  15. METOCLOPRAMIDE. [Concomitant]
     Active Substance: METOCLOPRAMIDE
     Indication: NAUSEA
     Dosage: 5 MG, UNK (STYRKE: 10 MGDOSIS: 1/2 TABL EFTER BEHOV)
     Route: 048
     Dates: start: 2016
  16. FLUTICASONE. [Concomitant]
     Active Substance: FLUTICASONE
     Indication: ASTHMA
     Dosage: 4 DF, QD
     Route: 055
     Dates: start: 20180409

REACTIONS (5)
  - Blood creatinine increased [Unknown]
  - Blood potassium increased [Unknown]
  - Acute kidney injury [Not Recovered/Not Resolved]
  - Glomerular filtration rate decreased [Unknown]
  - Blood urea increased [Unknown]

NARRATIVE: CASE EVENT DATE: 201812
